FAERS Safety Report 7669455-3 (Version None)
Quarter: 2011Q3

REPORT INFORMATION
  Report Type: 
  Country: None (occurrence: None)
  Receive Date: 20110803
  Receipt Date: 20110721
  Transmission Date: 20111222
  Serious: Yes (Other)
  Sender: FDA-Public Use
  Company Number: AUR-APL-2011-04449

PATIENT
  Age: 23 Year
  Sex: Male

DRUGS (1)
  1. TOPIRAMATE [Suspect]
     Indication: MIGRAINE
     Dosage: 25 MG (25 MG, 1 IN 1 D), ORAL
     Route: 048

REACTIONS (6)
  - EYE DISORDER [None]
  - CHOROIDAL EFFUSION [None]
  - TOXICITY TO VARIOUS AGENTS [None]
  - OCULAR HYPERAEMIA [None]
  - REFRACTION DISORDER [None]
  - VISION BLURRED [None]
